FAERS Safety Report 4765594-5 (Version None)
Quarter: 2005Q3

REPORT INFORMATION
  Report Type: 
  Country: None (occurrence: None)
  Receive Date: 20050906
  Receipt Date: 20050823
  Transmission Date: 20060218
  Serious: Yes (Hospitalization)
  Sender: FDA-Public Use
  Company Number: DE_050816778

PATIENT
  Age: 26 Year
  Sex: Female

DRUGS (1)
  1. HUMALOG [Suspect]
     Indication: DIABETES MELLITUS INSULIN-DEPENDENT
     Dates: start: 19950101

REACTIONS (8)
  - BLOOD GLUCOSE FLUCTUATION [None]
  - BLOOD PRESSURE DECREASED [None]
  - DEPRESSED LEVEL OF CONSCIOUSNESS [None]
  - DRUG EXPOSURE DURING PREGNANCY [None]
  - NASOPHARYNGITIS [None]
  - NAUSEA [None]
  - NO THERAPEUTIC RESPONSE [None]
  - VOMITING [None]
